FAERS Safety Report 8280230-1 (Version None)
Quarter: 2012Q2

REPORT INFORMATION
  Report Type: 
  Country: None (occurrence: None)
  Receive Date: 20120412
  Receipt Date: 20110909
  Transmission Date: 20120825
  Serious: No
  Sender: FDA-Public Use
  Company Number: US-ASTRAZENECA-2011SE54315

PATIENT
  Age: 76 Year
  Sex: Female
  Weight: 66.7 kg

DRUGS (3)
  1. PRILOSEC [Suspect]
     Route: 048
  2. VITAMIN TAB [Concomitant]
  3. NEXIUM [Suspect]
     Indication: GASTRIC ULCER
     Route: 048
     Dates: start: 20020101, end: 20020101

REACTIONS (3)
  - OFF LABEL USE [None]
  - GASTRIC ULCER [None]
  - DRUG INEFFECTIVE [None]
